FAERS Safety Report 10410360 (Version 3)
Quarter: 2014Q3

REPORT INFORMATION
  Report Type: Spontaneous
  Country: IT (occurrence: None)
  Receive Date: 20140623
  Receipt Date: 20140805
  Transmission Date: 20150326
  Serious: Yes (Other)
  Sender: FDA-Public Use
  Company Number: AUR-APL-2014-06176

PATIENT
  Age: 17 Year
  Sex: Female

DRUGS (1)
  1. AMOXICILLINA [Suspect]
     Active Substance: AMOXICILLIN
     Indication: PHARYNGOTONSILLITIS
     Dosage: 1 DF, TOTAL, ORAL
     Route: 048
     Dates: start: 20140421, end: 20140421

REACTIONS (4)
  - Urticaria [None]
  - Rash erythematous [None]
  - Hyperpyrexia [None]
  - Pruritus [None]

NARRATIVE: CASE EVENT DATE: 20140421
